FAERS Safety Report 12101566 (Version 1)
Quarter: 2016Q1

REPORT INFORMATION
  Report Type: Spontaneous
  Country: US (occurrence: US)
  Receive Date: 20160222
  Receipt Date: 20160222
  Transmission Date: 20160526
  Serious: Yes (Disabling)
  Sender: FDA-Public Use
  Company Number: US-SA-2016SA032405

PATIENT
  Age: 51 Year
  Sex: Female

DRUGS (4)
  1. TOUJEO [Concomitant]
     Active Substance: INSULIN GLARGINE
     Indication: TYPE 2 DIABETES MELLITUS
     Dosage: DOSE:30 UNIT(S)
     Dates: start: 201508
  2. TOUJEO [Concomitant]
     Active Substance: INSULIN GLARGINE
     Indication: TYPE 2 DIABETES MELLITUS
     Dosage: DOSE INCREASED?DOSE: 70-75 U
  3. SOLOSTAR [Concomitant]
     Active Substance: DEVICE
  4. LANTUS [Suspect]
     Active Substance: INSULIN GLARGINE
     Dosage: DOSE:40 UNIT(S)
     Route: 065

REACTIONS (8)
  - Dizziness [Unknown]
  - Glycosylated haemoglobin increased [Unknown]
  - Osteoarthritis [Unknown]
  - Somnolence [Unknown]
  - Fatigue [Unknown]
  - Disability [Unknown]
  - Pain [Unknown]
  - Blood glucose increased [Unknown]
